FAERS Safety Report 4283096-X (Version None)
Quarter: 2004Q1

REPORT INFORMATION
  Report Type: 
  Country: None (occurrence: None)
  Receive Date: 20040129
  Receipt Date: 20040123
  Transmission Date: 20041129
  Serious: Yes (Hospitalization)
  Sender: FDA-Public Use
  Company Number: 2003161260US

PATIENT
  Age: 10 Year
  Sex: Male

DRUGS (8)
  1. CAMPTOSAR [Suspect]
     Indication: NEOPLASM
     Dosage: 22, CYCLIC, IV
     Route: 042
     Dates: start: 20030419, end: 20030430
  2. CARBOPLATIN [Suspect]
     Indication: NEOPLASM
     Dosage: 540, CYCLIC, IV
     Route: 042
     Dates: start: 20030419, end: 20030419
  3. BACTRIM [Concomitant]
  4. NEURONTIN [Concomitant]
  5. CELEXA [Concomitant]
  6. ELAVIL [Concomitant]
  7. PERCOCET (OXYCODONE TEREPHTHALATE, OXYCODONE HYDROCHLORIDE) [Concomitant]
  8. ALBUTEROL [Concomitant]

REACTIONS (3)
  - ALPHA HAEMOLYTIC STREPTOCOCCAL INFECTION [None]
  - BACTERAEMIA [None]
  - CHILLS [None]
